FAERS Safety Report 6768652 (Version 3)
Quarter: 2013Q1

REPORT INFORMATION
  Report Type: Report from Study
  Country: NO (occurrence: NO)
  Receive Date: 20080908
  Receipt Date: 20130325
  Transmission Date: 20140127
  Serious: Yes (Hospitalization)
  Sender: FDA-Public Use
  Company Number: 2008BI022504

PATIENT
  Age: 53 Year
  Sex: Male

DRUGS (10)
  1. TYSABRI [Suspect]
     Indication: RELAPSING-REMITTING MULTIPLE SCLEROSIS
     Route: 042
     Dates: start: 20080109, end: 20080716
  2. PHENOXYMETHYLPENICILLIN [Concomitant]
     Dates: start: 20080301, end: 20080301
  3. GLIBENCLAMIDE [Concomitant]
     Indication: TYPE 2 DIABETES MELLITUS
  4. LIPITOR [Concomitant]
  5. LAMICTAL [Concomitant]
     Indication: BIPOLAR DISORDER
  6. LITHIONIT [Concomitant]
     Indication: BIPOLAR DISORDER
  7. RIVOTRIL [Concomitant]
     Indication: BIPOLAR DISORDER
  8. TRUXAL [Concomitant]
     Indication: BIPOLAR DISORDER
  9. METFORMIN [Concomitant]
     Indication: TYPE 2 DIABETES MELLITUS
  10. NITROGLYCERINE [Concomitant]

REACTIONS (3)
  - Angina unstable [Recovered/Resolved]
  - Myocardial infarction [Recovered/Resolved]
  - Malaise [Unknown]
